FAERS Safety Report 13738978 (Version 1)
Quarter: 2017Q3

REPORT INFORMATION
  Report Type: Report from Study
  Country: US (occurrence: US)
  Receive Date: 20170710
  Receipt Date: 20170710
  Transmission Date: 20171127
  Serious: No
  Sender: FDA-Public Use
  Company Number: US-SAOL THERAPEUTICS-2017SAO00753

PATIENT
  Age: 48 Year
  Sex: Male

DRUGS (12)
  1. COMPOUNDED BACLOFEN [Suspect]
     Active Substance: BACLOFEN
     Dosage: 249.2 ?G, \DAY
     Route: 037
     Dates: start: 20160414, end: 20160419
  2. COMPOUNDED BACLOFEN [Suspect]
     Active Substance: BACLOFEN
     Dosage: 551.6 ?G, \DAY
     Route: 037
     Dates: start: 20160414, end: 20160419
  3. COMPOUNDED BACLOFEN [Suspect]
     Active Substance: BACLOFEN
     Dosage: 629.3 ?G, \DAY
     Route: 037
     Dates: start: 20160419
  4. DILAUDID [Suspect]
     Active Substance: HYDROMORPHONE HYDROCHLORIDE
     Dosage: 0.5001 MG, \DAY
     Route: 037
     Dates: start: 20160419
  5. BUPIVACAINE. [Suspect]
     Active Substance: BUPIVACAINE
     Dosage: 4.983 MG, \DAY
     Route: 037
     Dates: start: 20160414, end: 20160419
  6. BUPIVACAINE. [Suspect]
     Active Substance: BUPIVACAINE
     Dosage: 11.032 MG, \DAY
     Route: 037
     Dates: start: 20160414, end: 20160419
  7. COMPOUNDED BACLOFEN [Suspect]
     Active Substance: BACLOFEN
     Dosage: 300.0 ?G, \DAY
     Route: 037
     Dates: start: 20160419
  8. DILAUDID [Suspect]
     Active Substance: HYDROMORPHONE HYDROCHLORIDE
     Dosage: 1.048 MG, \DAY
     Route: 037
     Dates: start: 20160419
  9. DILAUDID [Suspect]
     Active Substance: HYDROMORPHONE HYDROCHLORIDE
     Dosage: 0.4153, MG, \DAY
     Route: 037
     Dates: start: 20160414, end: 20160419
  10. BUPIVACAINE. [Suspect]
     Active Substance: BUPIVACAINE
     Dosage: 6.001 MG, \DAY
     Route: 037
     Dates: start: 20160419
  11. DILAUDID [Suspect]
     Active Substance: HYDROMORPHONE HYDROCHLORIDE
     Dosage: 0.919 MG, \DAY
     Route: 037
     Dates: start: 20160414, end: 20160419
  12. BUPIVACAINE. [Suspect]
     Active Substance: BUPIVACAINE
     Dosage: 12.587 MG, \DAY
     Route: 037
     Dates: start: 20160419

REACTIONS (1)
  - Implant site pain [Recovered/Resolved]

NARRATIVE: CASE EVENT DATE: 20160419
